FAERS Safety Report 9699192 (Version 1)
Quarter: 2013Q4

REPORT INFORMATION
  Report Type: Spontaneous
  Country: US (occurrence: US)
  Receive Date: 20131120
  Receipt Date: 20131120
  Transmission Date: 20140711
  Serious: No
  Sender: FDA-Public Use
  Company Number: US-GILEAD-2008-0015017

PATIENT
  Sex: Female
  Weight: 67.13 kg

DRUGS (25)
  1. LETAIRIS [Suspect]
     Indication: PULMONARY ARTERIAL HYPERTENSION
     Route: 048
     Dates: start: 20071110
  2. LETAIRIS [Suspect]
     Route: 048
  3. REVATIO [Concomitant]
     Route: 048
  4. LASIX [Concomitant]
     Route: 048
  5. SPIRONOLACTONE [Concomitant]
     Route: 048
  6. ATENOLOL [Concomitant]
     Route: 048
  7. DILTIA [Concomitant]
     Route: 048
  8. TIAZAC [Concomitant]
     Route: 048
  9. MINOXIDIL [Concomitant]
     Route: 048
  10. TAMBOCOR [Concomitant]
     Route: 048
  11. FLECAINIDE ACETATE [Concomitant]
     Route: 048
  12. CIPRO [Concomitant]
     Route: 048
  13. COLCHICINE [Concomitant]
     Dosage: PRN
     Route: 048
  14. ALLOPURINOL [Concomitant]
     Route: 048
  15. ARANESP [Concomitant]
     Route: 058
  16. PATANOL [Concomitant]
     Route: 047
  17. ATROVENT [Concomitant]
     Dosage: PRN
     Route: 055
  18. RANITIDINE [Concomitant]
     Route: 048
  19. PRILOSEC [Concomitant]
     Route: 048
  20. TYLENOL EXTRA STRENGTH [Concomitant]
     Dosage: PRN
     Route: 048
  21. HYDROCODONE W/APAP [Concomitant]
     Dosage: PRN
     Route: 048
  22. POTASSIUM CHLORIDE [Concomitant]
     Dosage: UD
     Route: 048
  23. FERROUS SULFATE [Concomitant]
     Route: 048
  24. CENTRUM SILVER [Concomitant]
     Route: 048
  25. CALCIUM +D [Concomitant]
     Route: 048

REACTIONS (5)
  - Decreased appetite [Unknown]
  - Nausea [Unknown]
  - Constipation [Unknown]
  - Headache [Unknown]
  - Hot flush [Unknown]
